FAERS Safety Report 5928017-6 (Version None)
Quarter: 2008Q4

REPORT INFORMATION
  Report Type: 
  Country: None (occurrence: None)
  Receive Date: 20081021
  Receipt Date: 20081009
  Transmission Date: 20090506
  Serious: Yes (Other)
  Sender: FDA-Public Use
  Company Number: 2008S1000279

PATIENT
  Age: 37 Year
  Sex: Female
  Weight: 63.5036 kg

DRUGS (4)
  1. AZASAN [Suspect]
     Indication: CROHN'S DISEASE
     Dosage: 50 MG; QD; PO
     Route: 048
     Dates: start: 20050101, end: 20080301
  2. PREDNISONE TAB [Concomitant]
  3. ASACOL [Concomitant]
  4. IMODIUM /01493801/ [Concomitant]

REACTIONS (5)
  - DRUG EXPOSURE DURING PREGNANCY [None]
  - DYSPHAGIA [None]
  - DYSPNOEA [None]
  - ERYTHEMA [None]
  - EXPIRED DRUG ADMINISTERED [None]
